FAERS Safety Report 5221138-5 (Version None)
Quarter: 2007Q1

REPORT INFORMATION
  Report Type: 
  Country: None (occurrence: None)
  Receive Date: 20070126
  Receipt Date: 20070119
  Transmission Date: 20070707
  Serious: Yes (Hospitalization)
  Sender: FDA-Public Use
  Company Number: US-JNJFOC-20070105248

PATIENT
  Sex: Female

DRUGS (3)
  1. MOTRIN [Suspect]
     Indication: OSTEOARTHRITIS
  2. ALEVE [Suspect]
     Indication: OSTEOARTHRITIS
  3. NAPROSYN [Suspect]
     Indication: OSTEOARTHRITIS
     Route: 048

REACTIONS (5)
  - DIVERTICULUM [None]
  - FLUID OVERLOAD [None]
  - GASTROINTESTINAL HAEMORRHAGE [None]
  - HIATUS HERNIA [None]
  - IRON DEFICIENCY ANAEMIA [None]
